FAERS Safety Report 6998290-4 (Version None)
Quarter: 2010Q3

REPORT INFORMATION
  Report Type: 
  Country: None (occurrence: None)
  Receive Date: 20100920
  Receipt Date: 20100503
  Transmission Date: 20110219
  Serious: No
  Sender: FDA-Public Use
  Company Number: US-ASTRAZENECA-2010SE20106

PATIENT
  Sex: Female
  Weight: 68 kg

DRUGS (2)
  1. SEROQUEL [Suspect]
     Indication: BIPOLAR DISORDER
     Route: 048
     Dates: start: 20030101
  2. WELLBUTRIN [Concomitant]

REACTIONS (3)
  - DRUG INEFFECTIVE [None]
  - VISION BLURRED [None]
  - VISUAL ACUITY REDUCED [None]
